FAERS Safety Report 4263097-8 (Version None)
Quarter: 2004Q1

REPORT INFORMATION
  Report Type: 
  Country: None (occurrence: None)
  Receive Date: 20040105
  Receipt Date: 20031217
  Transmission Date: 20041129
  Serious: No
  Sender: FDA-Public Use
  Company Number: PHBS2003JP14200

PATIENT
  Age: 79 Year
  Sex: Female

DRUGS (5)
  1. TEGRETOL [Suspect]
     Indication: TRIGEMINAL NEURALGIA
     Dosage: 200 MG/DAY
     Route: 048
     Dates: start: 20020601, end: 20031001
  2. TEGRETOL [Suspect]
     Dosage: 300 MG/DAY
     Route: 048
     Dates: start: 20031001, end: 20031217
  3. DIAZEPAM [Concomitant]
     Dosage: 4 MG/DAY
     Route: 048
     Dates: start: 20020601
  4. ADALAT [Concomitant]
     Dosage: 20 MG/DAY
     Route: 048
     Dates: start: 20020601
  5. BENET [Concomitant]
     Dosage: 2.5 MG/DAY
     Route: 048
     Dates: start: 20020601

REACTIONS (4)
  - AUTOIMMUNE THYROIDITIS [None]
  - CONCOMITANT DISEASE AGGRAVATED [None]
  - NEUROLEPTIC MALIGNANT SYNDROME [None]
  - TREMOR [None]
